FAERS Safety Report 8794234 (Version 1)
Quarter: 2012Q4

REPORT INFORMATION
  Report Type: 
  Country: US (occurrence: US)
  Receive Date: 20120918
  Receipt Date: 20120918
  Transmission Date: 20130627
  Serious: Yes (Other)
  Sender: FDA-Public Use
  Company Number: US-MERCK-1209USA005725

PATIENT

DRUGS (4)
  1. SAPHRIS [Suspect]
     Dosage: 20 mg, qpm
     Route: 060
  2. WELLBUTRIN [Suspect]
  3. LEXAPRO [Suspect]
  4. ALPRAZOLAM [Concomitant]
     Dosage: 4 mg, qpm

REACTIONS (3)
  - Mania [Unknown]
  - Inappropriate schedule of drug administration [Unknown]
  - Oedema peripheral [Unknown]
